FAERS Safety Report 12046736 (Version 1)
Quarter: 2016Q1

REPORT INFORMATION
  Report Type: Spontaneous
  Country: JP (occurrence: JP)
  Receive Date: 20160209
  Receipt Date: 20160209
  Transmission Date: 20160526
  Serious: Yes (Other)
  Sender: FDA-Public Use
  Company Number: JP-PFIZER INC-2016043833

PATIENT
  Age: 61 Year
  Sex: Male

DRUGS (5)
  1. CELECOX [Suspect]
     Active Substance: CELECOXIB
     Indication: ARTHRITIS
     Dosage: 100 MG, 2X/DAY (IN THE MORNING AND THE EVENING)
     Route: 048
     Dates: start: 20150108, end: 20150408
  2. LUSEFI [Concomitant]
     Indication: DIABETES MELLITUS
     Dosage: 2.5 MG, DAILY
     Route: 048
     Dates: start: 20150219, end: 20150408
  3. LIPITOR [Concomitant]
     Active Substance: ATORVASTATIN CALCIUM
     Dosage: 10 MG, UNK
  4. LIPIDIL [Concomitant]
     Active Substance: FENOFIBRATE
     Dosage: UNK
     Route: 048
  5. EPL CAP. [Concomitant]
     Dosage: UNK

REACTIONS (1)
  - Toxic skin eruption [Recovering/Resolving]

NARRATIVE: CASE EVENT DATE: 20150318
